FAERS Safety Report 14188852 (Version 1)
Quarter: 2017Q4

REPORT INFORMATION
  Report Type: Spontaneous
  Country: US (occurrence: US)
  Receive Date: 20171114
  Receipt Date: 20171114
  Transmission Date: 20180321
  Serious: No
  Sender: FDA-Public Use
  Company Number: US-BAUSCH-2010BL006530

PATIENT
  Age: 54 Year
  Sex: Female

DRUGS (1)
  1. MIOCHOL E [Suspect]
     Active Substance: ACETYLCHOLINE CHLORIDE
     Indication: MIOSIS
     Dosage: ONCE
     Route: 031
     Dates: start: 20070201, end: 20070201

REACTIONS (2)
  - No adverse event [Unknown]
  - Drug administration error [Unknown]

NARRATIVE: CASE EVENT DATE: 20070201
